FAERS Safety Report 17028179 (Version 2)
Quarter: 2019Q4

REPORT INFORMATION
  Report Type: Report from Study
  Country: JP (occurrence: JP)
  Receive Date: 20191113
  Receipt Date: 20191227
  Transmission Date: 20200122
  Serious: Yes (Hospitalization, Other)
  Sender: FDA-Public Use
  Company Number: NVSJ2019JP002426

PATIENT
  Age: 17 Year
  Sex: Male
  Weight: 54 kg

DRUGS (23)
  1. PLATELETS [Concomitant]
     Active Substance: HUMAN PLATELET, ALLOGENIC
     Dosage: 10 U
     Route: 065
     Dates: start: 20180714, end: 20180714
  2. PLATELETS [Concomitant]
     Active Substance: HUMAN PLATELET, ALLOGENIC
     Dosage: 10 U
     Route: 065
     Dates: start: 20180724, end: 20180724
  3. SOLU-MEDROL [Concomitant]
     Active Substance: METHYLPREDNISOLONE SODIUM SUCCINATE
     Indication: PROPHYLAXIS
     Dosage: 80 MG
     Route: 042
     Dates: start: 20180706, end: 20180710
  4. RED BLOOD CELLS, CONCENTRATED [Concomitant]
     Active Substance: HUMAN RED BLOOD CELL
     Indication: APLASTIC ANAEMIA
     Dosage: 2 U
     Route: 065
     Dates: start: 20180714, end: 20180714
  5. RED BLOOD CELLS, CONCENTRATED [Concomitant]
     Active Substance: HUMAN RED BLOOD CELL
     Dosage: 2 U
     Route: 065
     Dates: start: 20180717, end: 20180717
  6. RED BLOOD CELLS, CONCENTRATED [Concomitant]
     Active Substance: HUMAN RED BLOOD CELL
     Dosage: 2 U
     Route: 065
     Dates: start: 20180720, end: 20180720
  7. RED BLOOD CELLS, CONCENTRATED [Concomitant]
     Active Substance: HUMAN RED BLOOD CELL
     Dosage: 2 U
     Route: 065
     Dates: start: 20180721, end: 20180721
  8. DAIPHEN [Concomitant]
     Active Substance: SULFAMETHOXAZOLE\TRIMETHOPRIM
     Indication: PROPHYLAXIS
     Dosage: 1 DF
     Route: 048
     Dates: start: 20180706
  9. REVOLADE [Concomitant]
     Active Substance: ELTROMBOPAG
     Indication: APLASTIC ANAEMIA
     Dosage: 75 MG
     Route: 048
     Dates: start: 20180706
  10. THYMOGLOBULINE [Suspect]
     Active Substance: LAPINE T-LYMPHOCYTE IMMUNE GLOBULIN
     Indication: APLASTIC ANAEMIA
     Dosage: 212.5 MG
     Route: 042
     Dates: start: 20180706, end: 20180710
  11. PLATELETS [Concomitant]
     Active Substance: HUMAN PLATELET, ALLOGENIC
     Dosage: 10 U
     Route: 065
     Dates: start: 20180721, end: 20180721
  12. LEVOFLOXACIN. [Concomitant]
     Active Substance: LEVOFLOXACIN
     Indication: PROPHYLAXIS
     Dosage: 500 MG
     Route: 048
     Dates: start: 20180705, end: 20180712
  13. CICLOSPORIN [Concomitant]
     Active Substance: CYCLOSPORINE
     Dosage: 350 MG
     Route: 048
     Dates: start: 20180713, end: 20180717
  14. NEXIUM [Concomitant]
     Active Substance: ESOMEPRAZOLE MAGNESIUM
     Indication: PROPHYLAXIS
     Dosage: 20 MG
     Route: 048
     Dates: start: 20180706
  15. SOLU-MEDROL [Concomitant]
     Active Substance: METHYLPREDNISOLONE SODIUM SUCCINATE
     Dosage: 40 MG
     Route: 042
     Dates: start: 20180711, end: 20180713
  16. FILGRASTIM BS INJ. SYRINGE [Suspect]
     Active Substance: FILGRASTIM
     Indication: APLASTIC ANAEMIA
     Dosage: 300 UG/BODY; SITE, UPPER LIMB; QD
     Route: 058
     Dates: start: 20180706, end: 20180717
  17. CICLOSPORIN [Concomitant]
     Active Substance: CYCLOSPORINE
     Indication: APLASTIC ANAEMIA
     Dosage: 300 MG
     Route: 048
     Dates: start: 20180706, end: 20180712
  18. PLATELETS [Concomitant]
     Active Substance: HUMAN PLATELET, ALLOGENIC
     Indication: APLASTIC ANAEMIA
     Dosage: 10 U
     Route: 065
     Dates: start: 20180710, end: 20180710
  19. PLATELETS [Concomitant]
     Active Substance: HUMAN PLATELET, ALLOGENIC
     Dosage: 10 U
     Route: 065
     Dates: start: 20180712, end: 20180712
  20. PREDONINE [Concomitant]
     Active Substance: PREDNISOLONE
     Indication: PROPHYLAXIS
     Dosage: 20 MG
     Route: 042
     Dates: start: 20180714, end: 20180725
  21. FILGRASTIM BS INJ. SYRINGE [Suspect]
     Active Substance: FILGRASTIM
     Dosage: 300 UG, BID
     Route: 058
     Dates: start: 20180718, end: 20180725
  22. PLATELETS [Concomitant]
     Active Substance: HUMAN PLATELET, ALLOGENIC
     Dosage: 10 U
     Route: 065
     Dates: start: 20180717, end: 20180717
  23. CICLOSPORIN [Concomitant]
     Active Substance: CYCLOSPORINE
     Dosage: 400 MG
     Route: 048
     Dates: start: 20180718

REACTIONS (5)
  - Pyrexia [Recovering/Resolving]
  - Aplastic anaemia [Unknown]
  - Disease progression [Unknown]
  - White blood cell count decreased [Unknown]
  - Febrile neutropenia [Recovered/Resolved]

NARRATIVE: CASE EVENT DATE: 20180708
